FAERS Safety Report 17345220 (Version 1)
Quarter: 2020Q1

REPORT INFORMATION
  Report Type: Spontaneous
  Country: US (occurrence: US)
  Receive Date: 20200129
  Receipt Date: 20200129
  Transmission Date: 20200409
  Serious: Yes (Other)
  Sender: FDA-Public Use
  Company Number: US-ASTRAZENECA-2020SE13182

PATIENT
  Sex: Male
  Weight: 99.8 kg

DRUGS (3)
  1. PREDNISONE. [Concomitant]
     Active Substance: PREDNISONE
     Indication: COUGH
     Dosage: UNKNOWN
     Route: 065
  2. ALBUTEROL. [Concomitant]
     Active Substance: ALBUTEROL
     Indication: COUGH
     Dosage: AS REQUIRED
  3. SYMBICORT [Suspect]
     Active Substance: BUDESONIDE\FORMOTEROL FUMARATE DIHYDRATE
     Indication: ASTHMA
     Dosage: 160/4.5 MCG, 2 PUFFS,TWO TIMES A DAY
     Route: 055

REACTIONS (8)
  - Metastases to kidney [Unknown]
  - Prostate cancer [Unknown]
  - Asthma [Unknown]
  - Ureteric cancer [Unknown]
  - Device issue [Unknown]
  - Cough [Not Recovered/Not Resolved]
  - Bladder cancer [Unknown]
  - Wrong technique in device usage process [Unknown]
